FAERS Safety Report 10306678 (Version 2)
Quarter: 2014Q3

REPORT INFORMATION
  Report Type: Spontaneous
  Country: US (occurrence: US)
  Receive Date: 20140715
  Receipt Date: 20140825
  Transmission Date: 20150326
  Serious: No
  Sender: FDA-Public Use
  Company Number: US-PFIZER INC-2014192504

PATIENT
  Sex: Male
  Weight: 81.63 kg

DRUGS (1)
  1. SUTENT [Suspect]
     Active Substance: SUNITINIB MALATE
     Dosage: 50 MG, CYCLIC (2 WEEKS ON AND 1 WEEK OFF)
     Dates: start: 20140502

REACTIONS (3)
  - Oral pain [Unknown]
  - Pain in extremity [Unknown]
  - Skin exfoliation [Unknown]
